FAERS Safety Report 4519800-2 (Version None)
Quarter: 2004Q4

REPORT INFORMATION
  Report Type: 
  Country: None (occurrence: None)
  Receive Date: 20041202
  Receipt Date: 20041202
  Transmission Date: 20050328
  Serious: Yes (Hospitalization)
  Sender: FDA-Public Use
  Company Number: None

PATIENT
  Sex: Female
  Weight: 66 kg

DRUGS (5)
  1. PACITAXEL [Suspect]
     Indication: PERITONEAL CARCINOMA
     Dosage: 175MG/M2/IV/3/52
     Route: 042
     Dates: start: 20040713
  2. CARBOPLATIN [Suspect]
     Indication: PERITONEAL CARCINOMA
     Dosage: AUC 6/ IV / 3 / 52
     Route: 042
     Dates: start: 20040713
  3. FAMOTIDINE [Concomitant]
  4. ASPRIN [Concomitant]
  5. FOSINOPRIL [Concomitant]

REACTIONS (3)
  - CONSTIPATION [None]
  - DEHYDRATION [None]
  - SYNCOPE [None]
